FAERS Safety Report 16622839 (Version 1)
Quarter: 2019Q3

REPORT INFORMATION
  Report Type: Spontaneous
  Country: DE (occurrence: DE)
  Receive Date: 20190723
  Receipt Date: 20190723
  Transmission Date: 20191004
  Serious: Yes (Hospitalization)
  Sender: FDA-Public Use
  Company Number: DE-MYLANLABS-PHNU2001DE01426

PATIENT
  Age: 76 Year
  Sex: Female

DRUGS (6)
  1. NOVODIGAL                          /00017701/ [Concomitant]
     Active Substance: DIGOXIN
     Dosage: UNK
     Route: 048
     Dates: start: 1999
  2. LIPANTHYL [Concomitant]
     Active Substance: FENOFIBRATE
     Dosage: UNK
     Route: 048
     Dates: start: 1999
  3. ISOPTIN [Concomitant]
     Active Substance: VERAPAMIL HYDROCHLORIDE
     Dosage: UNK
     Dates: start: 1999
  4. INSULIN [Concomitant]
     Active Substance: INSULIN NOS
     Indication: DIABETES MELLITUS
     Dosage: UNK
     Dates: start: 1999
  5. MARCUMAR [Concomitant]
     Active Substance: PHENPROCOUMON
     Dosage: UNK
     Route: 065
     Dates: start: 1999
  6. CIBADREX [Suspect]
     Active Substance: BENAZEPRIL HYDROCHLORIDE
     Indication: HYPERTENSION
     Dosage: 1 DF, QD
     Route: 048
     Dates: start: 1999

REACTIONS (4)
  - Dermatitis bullous [Not Recovered/Not Resolved]
  - Procedural site reaction [Not Recovered/Not Resolved]
  - Pigmentation disorder [Not Recovered/Not Resolved]
  - Skin erosion [Not Recovered/Not Resolved]

NARRATIVE: CASE EVENT DATE: 1999
